APPROVED DRUG PRODUCT: BRILINTA
Active Ingredient: TICAGRELOR
Strength: 90MG
Dosage Form/Route: TABLET;ORAL
Application: N022433 | Product #001 | TE Code: AB
Applicant: ASTRAZENECA PHARMACEUTICALS LP
Approved: Jul 20, 2011 | RLD: Yes | RS: Yes | Type: RX

PATENTS:
Patent 10300065 | Expires: Jan 27, 2036
Patent 10300065 | Expires: Jan 27, 2036
Patent 8425934 | Expires: Apr 17, 2030
Patent 8425934*PED | Expires: Oct 17, 2030
Patent 10300065*PED | Expires: Jul 27, 2036